FAERS Safety Report 9948429 (Version 1)
Quarter: 2014Q1

REPORT INFORMATION
  Report Type: Report from Study
  Country: US (occurrence: US)
  Receive Date: 20140303
  Receipt Date: 20140303
  Transmission Date: 20141002
  Serious: No
  Sender: FDA-Public Use
  Company Number: US-ABBVIE-13P-163-1061299-00

PATIENT
  Age: 50 Year
  Sex: Female
  Weight: 93.07 kg

DRUGS (7)
  1. HUMIRA [Suspect]
     Indication: CROHN^S DISEASE
     Route: 058
     Dates: start: 20121123, end: 20121123
  2. HUMIRA [Suspect]
     Route: 058
     Dates: start: 20121207, end: 20121207
  3. HUMIRA [Suspect]
     Route: 058
     Dates: start: 201301
  4. MULTIVITAMIN [Concomitant]
     Indication: PRODUCT USED FOR UNKNOWN INDICATION
  5. ANTIHISTAMINES [Concomitant]
     Indication: HOUSE DUST ALLERGY
  6. ANTIHISTAMINES [Concomitant]
     Indication: SEASONAL ALLERGY
  7. TYLENOL [Concomitant]
     Indication: PAIN

REACTIONS (6)
  - Injection site bruising [Recovered/Resolved]
  - Injection site pruritus [Recovered/Resolved]
  - Injection site erythema [Recovering/Resolving]
  - Arthralgia [Not Recovered/Not Resolved]
  - Injection site pruritus [Recovering/Resolving]
  - Injection site swelling [Recovering/Resolving]
